FAERS Safety Report 17813535 (Version 2)
Quarter: 2020Q2

REPORT INFORMATION
  Report Type: Spontaneous
  Country: BE (occurrence: BE)
  Receive Date: 20200521
  Receipt Date: 20200629
  Transmission Date: 20200714
  Serious: Yes (Life-Threatening)
  Sender: FDA-Public Use
  Company Number: NVSC2020BE138776

PATIENT
  Age: 59 Year
  Sex: Male

DRUGS (5)
  1. METHYLPREDNISOLONE. [Suspect]
     Active Substance: METHYLPREDNISOLONE
     Indication: SYSTEMIC SCLERODERMA
     Dosage: 6 MG, QD
     Route: 048
  2. METHYLPREDNISOLONE. [Suspect]
     Active Substance: METHYLPREDNISOLONE
     Dosage: 32 MG ONCE DAILY ON DAYS 6-10
     Route: 048
  3. METHYLPREDNISOLONE. [Suspect]
     Active Substance: METHYLPREDNISOLONE
     Indication: PNEUMOCYSTIS JIROVECII PNEUMONIA
     Dosage: 32 MG, BID (ON DAYS 1-5)
     Route: 048
  4. METHYLPREDNISOLONE. [Suspect]
     Active Substance: METHYLPREDNISOLONE
     Dosage: 12 MG, QD
     Route: 048
  5. METHOTREXATE. [Suspect]
     Active Substance: METHOTREXATE
     Indication: SYSTEMIC SCLERODERMA
     Dosage: 20 MG, QW
     Route: 058

REACTIONS (7)
  - Pneumocystis jirovecii pneumonia [Unknown]
  - Neutropenia [Unknown]
  - Cough [Unknown]
  - Product use in unapproved indication [Unknown]
  - Asthenia [Unknown]
  - Dyspnoea [Unknown]
  - Hypoxia [Unknown]
